FAERS Safety Report 7270279-X (Version None)
Quarter: 2011Q1

REPORT INFORMATION
  Report Type: 
  Country: None (occurrence: None)
  Receive Date: 20110125
  Receipt Date: 20110125
  Transmission Date: 20110831
  Serious: Yes (Other)
  Sender: FDA-Public Use
  Company Number: None

PATIENT
  Age: 31 Year
  Sex: Female
  Weight: 63.9 kg

DRUGS (1)
  1. MONISTAT 1 COMBINATION PACK [Suspect]
     Indication: VULVOVAGINAL MYCOTIC INFECTION
     Dosage: 1 OVULE -1200 MG- 1; EXTERNAL CREAM -2 X DAY- 2 X DAY
     Dates: start: 20110120, end: 20110120

REACTIONS (6)
  - IMPAIRED WORK ABILITY [None]
  - VULVOVAGINAL BURNING SENSATION [None]
  - VULVOVAGINAL PRURITUS [None]
  - UTERINE PAIN [None]
  - URINARY TRACT DISORDER [None]
  - VULVOVAGINAL PAIN [None]
